FAERS Safety Report 12305471 (Version 4)
Quarter: 2018Q3

REPORT INFORMATION
  Report Type: Report from Study
  Country: US (occurrence: US)
  Receive Date: 20160426
  Receipt Date: 20180926
  Transmission Date: 20181010
  Serious: Yes (Hospitalization)
  Sender: FDA-Public Use
  Company Number: PHHO2008US017331

PATIENT
  Age: 45 Year
  Sex: Female
  Weight: 75.3 kg

DRUGS (4)
  1. TYVERB [Suspect]
     Active Substance: LAPATINIB
     Indication: BREAST CANCER METASTATIC
     Dosage: 750 MG, QD
     Route: 048
     Dates: start: 20081007, end: 20081013
  2. CARBOPLATIN. [Suspect]
     Active Substance: CARBOPLATIN
     Indication: BREAST CANCER METASTATIC
     Dosage: 262 MG, CYCLIC
     Route: 042
     Dates: start: 20081007, end: 20081014
  3. TRASTUZUMAB. [Suspect]
     Active Substance: TRASTUZUMAB
     Indication: BREAST CANCER METASTATIC
     Dosage: 2 MG/KG, QW
     Route: 042
     Dates: start: 20081007, end: 20081014
  4. PACLITAXEL. [Suspect]
     Active Substance: PACLITAXEL
     Indication: BREAST CANCER METASTATIC
     Dosage: 80 MG/M2, CYCLIC
     Route: 042
     Dates: start: 20081007, end: 20081014

REACTIONS (4)
  - Renal failure [Recovered/Resolved]
  - Hyperbilirubinaemia [Recovered/Resolved]
  - Rash [Recovered/Resolved]
  - Urinary tract infection [Recovered/Resolved]

NARRATIVE: CASE EVENT DATE: 20081014
